FAERS Safety Report 13621964 (Version 1)
Quarter: 2017Q2

REPORT INFORMATION
  Report Type: Spontaneous
  Country: US (occurrence: US)
  Receive Date: 20170607
  Receipt Date: 20170607
  Transmission Date: 20170830
  Serious: Yes (Other)
  Sender: FDA-Public Use
  Company Number: US-CELGENEUS-USA-2016118123

PATIENT

DRUGS (2)
  1. LIRILUMAB [Suspect]
     Active Substance: LIRILUMAB
     Indication: ACUTE MYELOID LEUKAEMIA
     Dosage: 1-3 MG/KG
     Route: 065
  2. AZACITIDINE INJECTABLE [Suspect]
     Active Substance: AZACITIDINE
     Indication: ACUTE MYELOID LEUKAEMIA
     Dosage: 75 MG/M2
     Route: 065

REACTIONS (11)
  - Urinary tract infection [Unknown]
  - Colitis [Unknown]
  - Infusion related reaction [Unknown]
  - Acute myeloid leukaemia [Unknown]
  - Mucosal inflammation [Unknown]
  - Skin infection [Unknown]
  - Abdominal pain [Unknown]
  - Neutropenic infection [Unknown]
  - Sepsis [Unknown]
  - Pneumonitis [Unknown]
  - Pneumonia [Unknown]
